FAERS Safety Report 7515259-1 (Version None)
Quarter: 2011Q2

REPORT INFORMATION
  Report Type: 
  Country: None (occurrence: None)
  Receive Date: 20110601
  Receipt Date: 20100609
  Transmission Date: 20111010
  Serious: No
  Sender: FDA-Public Use
  Company Number: US-PFIZER INC-2010073109

PATIENT
  Sex: Female
  Weight: 62 kg

DRUGS (6)
  1. BENICAR [Concomitant]
     Indication: HYPERTENSION
     Dosage: 12.5 MG, 1X/DAY
     Dates: start: 20010101
  2. CHANTIX [Suspect]
     Indication: SMOKING CESSATION THERAPY
     Dosage: 0.5 MG, 1X/DAY
     Route: 048
     Dates: start: 20100528
  3. CHANTIX [Suspect]
     Dosage: UNK
     Dates: start: 20100101
  4. PRIMIDONE [Concomitant]
     Dosage: 260 MG, 1X/DAY
  5. PROPRANOLOL [Concomitant]
     Dosage: 200 MG, 1X/DAY
     Dates: start: 20010101
  6. FEMHRT [Concomitant]
     Indication: HORMONE REPLACEMENT THERAPY
     Dosage: UNK
     Dates: start: 20070101

REACTIONS (2)
  - NAUSEA [None]
  - VOMITING [None]
